FAERS Safety Report 13033967 (Version 2)
Quarter: 2016Q4

REPORT INFORMATION
  Report Type: Spontaneous
  Country: US (occurrence: US)
  Receive Date: 20161216
  Receipt Date: 20161226
  Transmission Date: 20170207
  Serious: Yes (Other)
  Sender: FDA-Public Use
  Company Number: US-DRREDDYS-USA/USA/16/0085550

PATIENT
  Age: 78 Year
  Sex: Female

DRUGS (3)
  1. DIVALPROEX SODIUM. [Interacting]
     Active Substance: DIVALPROEX SODIUM
     Indication: SEIZURE
     Route: 065
  2. LEVETIRACETAM. [Suspect]
     Active Substance: LEVETIRACETAM
     Indication: SEIZURE
     Dosage: 2 YEARS BACK
     Route: 065
  3. LAMOTRIGINE TABLETS [Interacting]
     Active Substance: LAMOTRIGINE
     Indication: SEIZURE
     Dosage: UPTO 200MG
     Route: 065

REACTIONS (5)
  - Vision blurred [Recovering/Resolving]
  - Drug interaction [Unknown]
  - Nausea [Recovering/Resolving]
  - Ataxia [Recovering/Resolving]
  - Seizure [Recovering/Resolving]
